FAERS Safety Report 7276000-3 (Version None)
Quarter: 2011Q1

REPORT INFORMATION
  Report Type: 
  Country: None (occurrence: None)
  Receive Date: 20110204
  Receipt Date: 20110128
  Transmission Date: 20110831
  Serious: Yes (Other)
  Sender: FDA-Public Use
  Company Number: B0691876A

PATIENT
  Age: 80 Year
  Sex: Male

DRUGS (6)
  1. DUTASTERIDE/TAMSULIN HYDROCHLORIDE [Suspect]
     Indication: BENIGN PROSTATIC HYPERPLASIA
     Route: 065
     Dates: start: 20101201, end: 20101201
  2. HYDROCHLOROTHIAZIDE [Concomitant]
  3. EMCONCOR [Concomitant]
     Indication: ARRHYTHMIA
  4. ENALAPRIL MALEATE [Concomitant]
     Indication: HYPERTENSION
  5. SINTROM [Concomitant]
     Indication: ARRHYTHMIA
  6. ZYLORIC [Concomitant]
     Indication: BLOOD URIC ACID

REACTIONS (4)
  - PRURITUS [None]
  - CARDIAC FAILURE [None]
  - INFLAMMATION [None]
  - OSTEOARTHRITIS [None]
